FAERS Safety Report 18472263 (Version 1)
Quarter: 2020Q4

REPORT INFORMATION
  Report Type: Spontaneous
  Country: US (occurrence: US)
  Receive Date: 20201106
  Receipt Date: 20201106
  Transmission Date: 20210114
  Serious: No
  Sender: FDA-Public Use
  Company Number: US-SA-2020SA310955

PATIENT

DRUGS (1)
  1. DUPIXENT [Suspect]
     Active Substance: DUPILUMAB
     Indication: ASTHMA
     Dosage: 2 ML, QOW
     Route: 058
     Dates: start: 20200221

REACTIONS (1)
  - Patella fracture [Unknown]

NARRATIVE: CASE EVENT DATE: 20201030
